FAERS Safety Report 6662709-9 (Version None)
Quarter: 2010Q2

REPORT INFORMATION
  Report Type: 
  Country: None (occurrence: None)
  Receive Date: 20100401
  Receipt Date: 20100323
  Transmission Date: 20101027
  Serious: No
  Sender: FDA-Public Use
  Company Number: US-BIOGENIDEC-2010BI008772

PATIENT
  Age: 52 Year
  Sex: Female

DRUGS (1)
  1. TYSABRI [Suspect]
     Indication: MULTIPLE SCLEROSIS
     Route: 042
     Dates: start: 20071129

REACTIONS (6)
  - ERYTHEMA [None]
  - EYE HAEMORRHAGE [None]
  - EYE IRRITATION [None]
  - EYE SWELLING [None]
  - FEELING HOT [None]
  - PRURITUS GENERALISED [None]
